FAERS Safety Report 23667489 (Version 2)
Quarter: 2024Q2

REPORT INFORMATION
  Report Type: Spontaneous
  Country: US (occurrence: US)
  Receive Date: 20240325
  Receipt Date: 20240408
  Transmission Date: 20240715
  Serious: Yes (Hospitalization)
  Sender: FDA-Public Use
  Company Number: US-BIOGEN-2024BI01256575

PATIENT
  Sex: Female

DRUGS (1)
  1. SKYCLARYS [Suspect]
     Active Substance: OMAVELOXOLONE
     Indication: Friedreich^s ataxia
     Route: 050
     Dates: start: 20231212

REACTIONS (5)
  - Gastric dilatation [Unknown]
  - Peripheral swelling [Unknown]
  - Abdominal rigidity [Unknown]
  - Swelling face [Unknown]
  - Diarrhoea [Unknown]
